FAERS Safety Report 9815607 (Version 4)
Quarter: 2014Q1

REPORT INFORMATION
  Report Type: Spontaneous
  Country: US (occurrence: US)
  Receive Date: 20140114
  Receipt Date: 20140310
  Transmission Date: 20141002
  Serious: No
  Sender: FDA-Public Use
  Company Number: US-PFIZER INC-2014010159

PATIENT
  Age: 71 Year
  Sex: Female

DRUGS (3)
  1. PRISTIQ [Suspect]
     Dosage: UNK
  2. PRISTIQ [Suspect]
     Dosage: UNK, 1X/DAY
  3. PRISTIQ [Suspect]
     Dosage: UNK, 2X/DAY

REACTIONS (12)
  - Drug ineffective [Unknown]
  - Insomnia [Unknown]
  - Medication residue present [Unknown]
  - Visual impairment [Unknown]
  - Dry mouth [Unknown]
  - Oropharyngeal pain [Unknown]
  - Lip blister [Unknown]
  - Asthenia [Unknown]
  - Gait disturbance [Recovering/Resolving]
  - Gastrointestinal disorder [Unknown]
  - Dizziness [Unknown]
  - Mucous membrane disorder [Unknown]
